FAERS Safety Report 5957989-9 (Version None)
Quarter: 2008Q4

REPORT INFORMATION
  Report Type: 
  Country: None (occurrence: None)
  Receive Date: 20081119
  Receipt Date: 20081113
  Transmission Date: 20090506
  Serious: Yes (Other)
  Sender: FDA-Public Use
  Company Number: JP-AVENTIS-200813561JP

PATIENT
  Sex: Female

DRUGS (1)
  1. LASIX [Suspect]

REACTIONS (1)
  - PSEUDO-BARTTER SYNDROME [None]
